FAERS Safety Report 26133298 (Version 1)
Quarter: 2025Q4

REPORT INFORMATION
  Report Type: Spontaneous
  Country: GB (occurrence: GB)
  Receive Date: 20251209
  Receipt Date: 20251209
  Transmission Date: 20260118
  Serious: Yes (Disabling, Other)
  Sender: BRISTOL-MYERS SQUIBB COMPANY
  Company Number: GB-BRISTOL-MYERS SQUIBB COMPANY-2025-164451

PATIENT
  Age: 50 Year
  Sex: Female

DRUGS (1)
  1. ELIQUIS [Suspect]
     Active Substance: APIXABAN
     Indication: Atrial fibrillation

REACTIONS (4)
  - Cerebral haemorrhage [Recovered/Resolved]
  - Cerebrovascular accident [Unknown]
  - Seizure [Unknown]
  - Neck injury [Unknown]

NARRATIVE: CASE EVENT DATE: 20220424
